FAERS Safety Report 19965086 (Version 1)
Quarter: 2021Q4

REPORT INFORMATION
  Report Type: Spontaneous
  Country: US (occurrence: US)
  Receive Date: 20211018
  Receipt Date: 20211018
  Transmission Date: 20220303
  Serious: Yes (Hospitalization, Other)
  Sender: FDA-Public Use
  Company Number: US-NOVARTISPH-NVSC2021US236972

PATIENT

DRUGS (1)
  1. LUTATHERA [Suspect]
     Active Substance: LUTETIUM OXODOTREOTIDE LU-177
     Indication: Product used for unknown indication
     Dosage: 1 DF (RECEIVED 5 DOSES)
     Route: 065
     Dates: start: 20210605

REACTIONS (2)
  - Malignant neoplasm progression [Unknown]
  - Ill-defined disorder [Unknown]
